FAERS Safety Report 9472671 (Version 1)
Quarter: 2013Q3

REPORT INFORMATION
  Report Type: Report from Study
  Country: DE (occurrence: DE)
  Receive Date: 20130823
  Receipt Date: 20130823
  Transmission Date: 20140515
  Serious: Yes (Death, Hospitalization)
  Sender: FDA-Public Use
  Company Number: DE-PFIZER INC-2013235516

PATIENT
  Age: 65 Year
  Sex: Male

DRUGS (22)
  1. IRINOTECAN HCL [Suspect]
     Indication: GLIOBLASTOMA
     Dosage: 225 MG, 2 PER WEEK
     Route: 042
     Dates: start: 20101229
  2. IRINOTECAN HCL [Suspect]
  3. BEVACIZUMAB [Suspect]
     Indication: GLIOBLASTOMA
     Dosage: 725 MG, 2 PER WEEK
     Route: 042
     Dates: start: 20101117
  4. ZENTROPIL [Concomitant]
     Dosage: 100 MG, UNK
     Dates: start: 20101013, end: 20101111
  5. FINASTERIDE [Concomitant]
     Dosage: 5 MG, UNK
     Dates: start: 20101013
  6. SANDOCAL-D [Concomitant]
     Dosage: 50 MG, UNK
     Dates: start: 20101013
  7. NEXIUM MUPS [Concomitant]
     Dosage: 40 MG, UNK
     Dates: start: 20101013, end: 20101102
  8. FORTECORTIN [Concomitant]
     Dosage: 2 MG, UNK
     Dates: start: 20101013
  9. NOVALGIN [Concomitant]
     Dosage: 500 MG, UNK
     Dates: start: 20101102
  10. FRAXIPARIN [Concomitant]
     Dosage: 0.3 MG, UNK
     Dates: start: 20101013
  11. FRAXIPARIN [Concomitant]
     Dosage: 0.3 ML, UNK
     Route: 058
     Dates: start: 20120213
  12. KEPPRA [Concomitant]
     Dosage: 250 MG, UNK
     Dates: start: 20101112
  13. KEPPRA [Concomitant]
     Dosage: 1.5 MG, UNK
     Dates: start: 20120213
  14. ZANTIC [Concomitant]
     Dosage: 1/50 MG, UNK
     Dates: start: 20101201, end: 20101201
  15. TAVEGIL [Concomitant]
     Dosage: 2 MG, UNK
     Dates: start: 20101201, end: 20101201
  16. BAYOTENSIN [Concomitant]
     Dosage: 5 MG, UNK
     Dates: start: 20110601, end: 20110601
  17. ZOFRAN [Concomitant]
     Dosage: 4 MG, UNK
     Dates: start: 20110616
  18. PANTAZOL [Concomitant]
     Dosage: 40 MG, UNK
     Dates: start: 20120213
  19. L-THYROXIN [Concomitant]
     Indication: HYPOTHYROIDISM
     Dosage: DAILY DOSE: 0.05
     Dates: start: 20120213
  20. CIPROBAY [Concomitant]
     Dosage: 100 MG, UNK
     Dates: start: 20120213, end: 20120215
  21. DEXAMETHASON [Concomitant]
     Dosage: 6 MG, UNK
     Dates: start: 20101013, end: 20101014
  22. DEXAMETHASON [Concomitant]
     Dosage: 4 MG, UNK
     Dates: start: 20101015, end: 20101015

REACTIONS (3)
  - General physical health deterioration [Fatal]
  - Panic attack [Recovered/Resolved]
  - Grand mal convulsion [Recovered/Resolved]
